FAERS Safety Report 4690378-6 (Version None)
Quarter: 2005Q2

REPORT INFORMATION
  Report Type: 
  Country: None (occurrence: None)
  Receive Date: 20050615
  Receipt Date: 20050601
  Transmission Date: 20051028
  Serious: Yes (Hospitalization, Other)
  Sender: FDA-Public Use
  Company Number: GB-JNJFOC-20050401861

PATIENT
  Sex: Male
  Weight: 96 kg

DRUGS (18)
  1. REMICADE [Suspect]
     Indication: RHEUMATOID ARTHRITIS
     Route: 042
  2. INDOCID [Concomitant]
  3. DICLOFENAC [Concomitant]
  4. METHOTREXATE [Concomitant]
  5. FOLIC ACID [Concomitant]
  6. PREDNISOLONE [Concomitant]
  7. LANSOPRAZOLE [Concomitant]
  8. TRAMADOL [Concomitant]
  9. CO-CODAMOL [Concomitant]
  10. CO-CODAMOL [Concomitant]
  11. TINZAPARIN [Concomitant]
  12. LACTULOSE [Concomitant]
  13. OMEPRAZOLE [Concomitant]
     Route: 049
  14. AMYTRIPTYLINE [Concomitant]
     Route: 049
  15. SIMVASTATIN [Concomitant]
     Route: 049
  16. CO-AMILOFRUSE [Concomitant]
     Route: 049
  17. CO-AMILOFRUSE [Concomitant]
     Route: 049
  18. DILTIAZEM [Concomitant]
     Route: 049

REACTIONS (2)
  - GASTROINTESTINAL TRACT ADENOMA [None]
  - POLYP [None]
